FAERS Safety Report 9112703 (Version 1)
Quarter: 2013Q1

REPORT INFORMATION
  Report Type: Spontaneous
  Country: US (occurrence: US)
  Receive Date: 20130211
  Receipt Date: 20130211
  Transmission Date: 20140127
  Serious: Yes (Hospitalization, Other)
  Sender: FDA-Public Use
  Company Number: US-RB-049322-13

PATIENT
  Age: 74 Year
  Sex: Female

DRUGS (2)
  1. MUCINEX D [Suspect]
     Indication: SINUS DISORDER
     Dosage: PRODUCT STARTED ON ??/NOV/2012 AND STOPPED ON 13-DEC-2012.
     Route: 048
  2. MUCINEX D [Suspect]

REACTIONS (4)
  - Cerebellar haemorrhage [Recovered/Resolved]
  - Cerebrovascular accident [Recovered/Resolved]
  - Hemiparesis [Recovered/Resolved]
  - Incorrect drug administration duration [Recovered/Resolved]
